FAERS Safety Report 8639731 (Version 4)
Quarter: 2014Q2

REPORT INFORMATION
  Report Type: Report from Study
  Country: DE (occurrence: DE)
  Receive Date: 20120628
  Receipt Date: 20131120
  Transmission Date: 20141212
  Serious: Yes (Hospitalization)
  Sender: FDA-Public Use
  Company Number: DE-TEVA-344436GER

PATIENT
  Age: 61 Year
  Sex: Female
  Weight: 60 kg

DRUGS (5)
  1. MYOCET [Suspect]
     Indication: HER-2 POSITIVE BREAST CANCER
     Route: 042
     Dates: start: 20120322
  2. CARBOPLATIN [Suspect]
     Dosage: AUC 2
     Route: 042
     Dates: start: 20120322
  3. TAXOL [Suspect]
     Route: 042
     Dates: start: 20120322
  4. HERCEPTIN [Suspect]
     Indication: HER-2 POSITIVE BREAST CANCER
     Route: 042
     Dates: start: 20120322
  5. LAPATINIB [Suspect]
     Indication: HER-2 POSITIVE BREAST CANCER
     Dosage: 500 MILLIGRAM DAILY;
     Route: 048
     Dates: start: 20120322

REACTIONS (1)
  - Colitis [Recovered/Resolved]
